FAERS Safety Report 22227414 (Version 1)
Quarter: 2023Q2

REPORT INFORMATION
  Report Type: Spontaneous
  Country: US (occurrence: None)
  Receive Date: 20230417
  Receipt Date: 20230417
  Transmission Date: 20230721
  Serious: No
  Sender: FDA-Public Use
  Company Number: None

PATIENT
  Age: 88 Year
  Sex: Female
  Weight: 62.91 kg

DRUGS (9)
  1. SCEMBLIX [Suspect]
     Active Substance: ASCIMINIB HYDROCHLORIDE
     Indication: Chronic myeloid leukaemia
     Dosage: FREQUENCY : TWICE A DAY;?
     Route: 048
  2. ELIQUIS [Concomitant]
     Active Substance: APIXABAN
  3. LASIX [Concomitant]
     Active Substance: FUROSEMIDE
  4. PENLAC [Concomitant]
     Active Substance: CICLOPIROX
  5. FISH OIL [Concomitant]
     Active Substance: FISH OIL
  6. VALSARTAN [Concomitant]
     Active Substance: VALSARTAN
  7. VITAMIN B12 [Concomitant]
     Active Substance: CYANOCOBALAMIN
  8. VITAMINS [Concomitant]
     Active Substance: VITAMINS
  9. VITAMIN C [Concomitant]
     Active Substance: ASCORBIC ACID

REACTIONS (1)
  - Cardiac operation [None]
